FAERS Safety Report 8215110-0 (Version None)
Quarter: 2012Q1

REPORT INFORMATION
  Report Type: 
  Country: None (occurrence: None)
  Receive Date: 20120229
  Receipt Date: 20110525
  Transmission Date: 20120608
  Serious: Yes (Other)
  Sender: FDA-Public Use
  Company Number: PHHY2011US45688

PATIENT
  Sex: Female

DRUGS (1)
  1. NEORAL [Suspect]
     Indication: COMPLICATIONS OF TRANSPLANTED KIDNEY
     Dosage: 175 MG, ORAL
     Route: 048
     Dates: start: 20110226

REACTIONS (1)
  - DIABETES MELLITUS [None]
